FAERS Safety Report 6112375-6 (Version None)
Quarter: 2009Q1

REPORT INFORMATION
  Report Type: 
  Country: None (occurrence: None)
  Receive Date: 20090312
  Receipt Date: 20090227
  Transmission Date: 20090719
  Serious: Yes (Life-Threatening)
  Sender: FDA-Public Use
  Company Number: JP-BAYER-200812385BYL

PATIENT
  Age: 48 Year
  Sex: Female
  Weight: 67 kg

DRUGS (4)
  1. BETAFERON [Suspect]
     Indication: MULTIPLE SCLEROSIS
     Dosage: UNIT DOSE: 9.6 MIU
     Route: 058
     Dates: start: 20020805
  2. MAPILON COUGH [Interacting]
     Indication: NASOPHARYNGITIS
     Dosage: UNIT DOSE: 1 DF
     Route: 048
  3. BENZA BLOCK L [Concomitant]
     Indication: NASOPHARYNGITIS
     Route: 048
  4. BENZA BLOCK COUGH [Concomitant]
     Indication: NASOPHARYNGITIS
     Route: 048

REACTIONS (1)
  - INTERSTITIAL LUNG DISEASE [None]
